FAERS Safety Report 14122598 (Version 1)
Quarter: 2017Q4

REPORT INFORMATION
  Report Type: Spontaneous
  Country: US (occurrence: US)
  Receive Date: 20171024
  Receipt Date: 20171024
  Transmission Date: 20180321
  Serious: Yes (Other)
  Sender: FDA-Public Use
  Company Number: US-ENDO PHARMACEUTICALS INC-2017-005705

PATIENT
  Sex: Male

DRUGS (4)
  1. XIAFLEX [Suspect]
     Active Substance: COLLAGENASE CLOSTRIDIUM HISTOLYTICUM
     Dosage: UNK FIRST INJECTION, CYCLE TWO, SINGLE
     Route: 026
     Dates: start: 201709
  2. XIAFLEX [Suspect]
     Active Substance: COLLAGENASE CLOSTRIDIUM HISTOLYTICUM
     Indication: PEYRONIE^S DISEASE
     Dosage: UNK, SECOND INJECTION, CYCLE TWO SINGLE
     Route: 026
     Dates: start: 201709
  3. XIAFLEX [Suspect]
     Active Substance: COLLAGENASE CLOSTRIDIUM HISTOLYTICUM
     Dosage: UNK, SECOND INJECTION, CYCLE ONE SINGLE
     Route: 026
     Dates: start: 2017
  4. XIAFLEX [Suspect]
     Active Substance: COLLAGENASE CLOSTRIDIUM HISTOLYTICUM
     Dosage: UNK, FIRST INJECTION, CYCLE ONE SINGLE
     Route: 026
     Dates: start: 201707

REACTIONS (8)
  - Skin exfoliation [Not Recovered/Not Resolved]
  - Penile haematoma [Not Recovered/Not Resolved]
  - Blood blister [Not Recovered/Not Resolved]
  - Inappropriate schedule of drug administration [Unknown]
  - Penile pain [Not Recovered/Not Resolved]
  - Penile blister [Not Recovered/Not Resolved]
  - Penile erythema [Not Recovered/Not Resolved]
  - Penile swelling [Unknown]

NARRATIVE: CASE EVENT DATE: 201709
